FAERS Safety Report 8249929-7 (Version None)
Quarter: 2012Q2

REPORT INFORMATION
  Report Type: 
  Country: None (occurrence: None)
  Receive Date: 20120402
  Receipt Date: 20120327
  Transmission Date: 20120825
  Serious: Yes (Other)
  Sender: FDA-Public Use
  Company Number: CA-JNJFOC-20111205921

PATIENT

DRUGS (2)
  1. PREZISTA [Suspect]
     Indication: HIV INFECTION
     Route: 065
  2. RITONAVIR [Suspect]
     Indication: HIV INFECTION
     Route: 065

REACTIONS (1)
  - NEUTROPHIL COUNT DECREASED [None]
